FAERS Safety Report 8442885-8 (Version None)
Quarter: 2012Q2

REPORT INFORMATION
  Report Type: 
  Country: None (occurrence: None)
  Receive Date: 20120323
  Receipt Date: 20110609
  Transmission Date: 20120825
  Serious: Yes (Other)
  Sender: FDA-Public Use
  Company Number: 163-21880-11061488

PATIENT
  Age: 60 Year
  Sex: Female

DRUGS (14)
  1. VITAMIN D [Concomitant]
  2. SYNTHROID [Concomitant]
  3. VELCADE [Concomitant]
  4. CALCIUM CARBONATE [Concomitant]
  5. COMPAZINE (PROCHLORPERZINE EDISYLATE) [Concomitant]
  6. REVLIMID [Suspect]
     Indication: MULTIPLE MYELOMA
     Dosage: 25 MG, X 21 DAYS, PO
     Route: 048
     Dates: start: 20110114
  7. DECADRON [Concomitant]
  8. PERCOCET [Concomitant]
  9. ZOMETA [Concomitant]
  10. CYMBALTA [Concomitant]
  11. NEURONTIN [Concomitant]
  12. AMITRIPTYLINE HCL [Concomitant]
  13. KLONOPIN [Concomitant]
  14. MULTIVITAMIN [Concomitant]

REACTIONS (2)
  - MENTAL STATUS CHANGES [None]
  - HALLUCINATION [None]
